FAERS Safety Report 8770904 (Version 1)
Quarter: 2012Q4

REPORT INFORMATION
  Report Type: 
  Country: US (occurrence: US)
  Receive Date: 20120906
  Receipt Date: 20120906
  Transmission Date: 20130627
  Serious: Yes (Hospitalization)
  Sender: FDA-Public Use
  Company Number: US-BAYER-2012-091270

PATIENT
  Age: 16 Year
  Sex: Female
  Weight: 58 kg

DRUGS (5)
  1. YAZ [Suspect]
  2. MARCAINE WITH EPINEPHRINE [Concomitant]
     Dosage: Marcaine 0.5% with 1:200,000 epinephrine
  3. TRAMADOL [Concomitant]
     Dosage: 50 [as written]
  4. PREDNISONE [Concomitant]
     Dosage: 4 mg,daily
  5. SOLU-MEDROL [Concomitant]
     Route: 042

REACTIONS (1)
  - Pulmonary embolism [None]
